FAERS Safety Report 16702166 (Version 1)
Quarter: 2019Q3

REPORT INFORMATION
  Report Type: Not Available
  Country: GB (occurrence: GB)
  Receive Date: 20190814
  Receipt Date: 20190814
  Transmission Date: 20191004
  Serious: Yes (Other)
  Sender: FDA-Public Use
  Company Number: GB-SYNTHON BV-IN51PV19_49440

PATIENT
  Sex: Male

DRUGS (1)
  1. CONTIFLO [Suspect]
     Active Substance: TAMSULOSIN
     Indication: BENIGN PROSTATIC HYPERPLASIA
     Dosage: UNK
     Dates: start: 201810

REACTIONS (4)
  - Gastrointestinal disorder [Recovering/Resolving]
  - Depression [Recovering/Resolving]
  - Asthenia [Recovering/Resolving]
  - Product substitution issue [Unknown]
